FAERS Safety Report 6450930-4 (Version None)
Quarter: 2009Q4

REPORT INFORMATION
  Report Type: 
  Country: None (occurrence: None)
  Receive Date: 20091123
  Receipt Date: 20091116
  Transmission Date: 20100525
  Serious: Yes (Hospitalization)
  Sender: FDA-Public Use
  Company Number: A0800775A

PATIENT
  Age: 79 Year
  Sex: Male

DRUGS (16)
  1. PROMACTA [Suspect]
     Indication: IDIOPATHIC THROMBOCYTOPENIC PURPURA
     Dosage: 75MG PER DAY
     Route: 048
     Dates: start: 20090615, end: 20090623
  2. CORTICOSTEROID [Concomitant]
     Indication: IDIOPATHIC THROMBOCYTOPENIC PURPURA
  3. IMMUNE GLOBULIN INTRAVENOUS (HUMAN) [Concomitant]
     Indication: IDIOPATHIC THROMBOCYTOPENIC PURPURA
  4. ROMIPLOSTIM [Concomitant]
  5. VINCRISTINE [Concomitant]
  6. DANAZOL [Concomitant]
  7. FERROUS SULFATE TAB [Concomitant]
  8. FOLIC ACID [Concomitant]
  9. LISINOPRIL [Concomitant]
  10. NITROGLYCERIN [Concomitant]
  11. ROPINIROLE [Concomitant]
  12. TRAZODONE HCL [Concomitant]
  13. SUCRALFATE [Concomitant]
  14. DOCUSATE [Concomitant]
  15. DILTIAZEM [Concomitant]
  16. ZOFRAN [Concomitant]

REACTIONS (5)
  - ALANINE AMINOTRANSFERASE INCREASED [None]
  - ASPARTATE AMINOTRANSFERASE INCREASED [None]
  - BLOOD BILIRUBIN INCREASED [None]
  - DRUG INEFFECTIVE [None]
  - INFECTION [None]
